FAERS Safety Report 4653230-8 (Version None)
Quarter: 2005Q2

REPORT INFORMATION
  Report Type: 
  Country: None (occurrence: None)
  Receive Date: 20050504
  Receipt Date: 20050504
  Transmission Date: 20051028
  Serious: Yes (Other)
  Sender: FDA-Public Use
  Company Number: None

PATIENT
  Sex: Female

DRUGS (2)
  1. PREDNISOLONE [Suspect]
     Indication: CHORIORETINITIS
     Dosage: QID
     Dates: start: 20050426
  2. PREDNISOLONE [Suspect]
     Indication: VITREOUS HAEMORRHAGE
     Dosage: QID
     Dates: start: 20050426

REACTIONS (1)
  - PHARMACEUTICAL PRODUCT COMPLAINT [None]
